FAERS Safety Report 26183893 (Version 1)
Quarter: 2025Q4

REPORT INFORMATION
  Report Type: Spontaneous
  Country: US (occurrence: US)
  Receive Date: 20251222
  Receipt Date: 20251222
  Transmission Date: 20260119
  Serious: Yes (Hospitalization)
  Sender: BAXTER
  Company Number: US-MLMSERVICE-20251204-PI739534-00029-1

PATIENT
  Age: 49 Year
  Sex: Female

DRUGS (1)
  1. ACETAMINOPHEN [Suspect]
     Active Substance: ACETAMINOPHEN
     Dosage: UNK
     Route: 065

REACTIONS (4)
  - Metabolic acidosis [Recovering/Resolving]
  - Dyspnoea [Unknown]
  - Mental status changes [Unknown]
  - Pyroglutamic acidosis [Recovering/Resolving]
